FAERS Safety Report 8347698-3 (Version None)
Quarter: 2012Q2

REPORT INFORMATION
  Report Type: 
  Country: None (occurrence: None)
  Receive Date: 20120509
  Receipt Date: 20120426
  Transmission Date: 20120825
  Serious: Yes (Hospitalization)
  Sender: FDA-Public Use
  Company Number: JP-ELI_LILLY_AND_COMPANY-JP201202007750

PATIENT
  Age: 76 Year
  Sex: Female

DRUGS (2)
  1. FORTEO [Suspect]
     Dosage: UNK
     Route: 058
     Dates: end: 20120312
  2. FORTEO [Suspect]
     Dosage: UNK
     Route: 058
     Dates: start: 20120404

REACTIONS (3)
  - EXPIRED DRUG ADMINISTERED [None]
  - SWELLING FACE [None]
  - EYE OPERATION [None]
